FAERS Safety Report 4347001-X (Version None)
Quarter: 2004Q1

REPORT INFORMATION
  Report Type: 
  Country: None (occurrence: None)
  Receive Date: 20040329
  Receipt Date: 20040219
  Transmission Date: 20041129
  Serious: No
  Sender: FDA-Public Use
  Company Number: USA040259248

PATIENT
  Age: 18 Year
  Sex: Male
  Weight: 82 kg

DRUGS (6)
  1. STRATTERA [Suspect]
     Indication: ATTENTION DEFICIT/HYPERACTIVITY DISORDER
     Dosage: 40 MG/DAY
     Dates: start: 20030101
  2. TRAZODONE HCL [Concomitant]
  3. ALLEGRA [Concomitant]
  4. FLOVENT [Concomitant]
  5. ADDERALL 10 [Concomitant]
  6. PROZAC [Concomitant]

REACTIONS (3)
  - CHROMATURIA [None]
  - SCROTAL PAIN [None]
  - SOMNOLENCE [None]
